FAERS Safety Report 9798746 (Version 2)
Quarter: 2015Q3

REPORT INFORMATION
  Report Type: Spontaneous
  Country: US (occurrence: US)
  Receive Date: 20140106
  Receipt Date: 20150806
  Transmission Date: 20151125
  Serious: No
  Sender: FDA-Public Use
  Company Number: US-GILEAD-2010-0030048

PATIENT
  Age: 72 Year
  Sex: Male
  Weight: 68.04 kg

DRUGS (12)
  1. SPIRIVA [Concomitant]
     Active Substance: TIOTROPIUM BROMIDE MONOHYDRATE
  2. FORADIL [Concomitant]
     Active Substance: FORMOTEROL FUMARATE
  3. SILDENAFIL CITRATE. [Concomitant]
     Active Substance: SILDENAFIL CITRATE
  4. LETAIRIS [Suspect]
     Active Substance: AMBRISENTAN
     Indication: PULMONARY ARTERIAL HYPERTENSION
     Route: 048
     Dates: start: 20090716
  5. VITAMIN [Concomitant]
     Active Substance: VITAMINS
  6. PREDNISONE. [Concomitant]
     Active Substance: PREDNISONE
  7. OXYGEN. [Concomitant]
     Active Substance: OXYGEN
  8. FUROSEMIDE. [Concomitant]
     Active Substance: FUROSEMIDE
  9. NEXIUM [Concomitant]
     Active Substance: ESOMEPRAZOLE MAGNESIUM
  10. LEVOTHYROXINE. [Concomitant]
     Active Substance: LEVOTHYROXINE
  11. DILTIAZEM [Concomitant]
     Active Substance: DILTIAZEM
  12. COUMADIN [Concomitant]
     Active Substance: WARFARIN SODIUM

REACTIONS (3)
  - Upper-airway cough syndrome [Unknown]
  - Nasal congestion [Unknown]
  - Sinus disorder [Unknown]
